FAERS Safety Report 5647326-1 (Version None)
Quarter: 2008Q1

REPORT INFORMATION
  Report Type: 
  Country: None (occurrence: None)
  Receive Date: 20080131
  Receipt Date: 20071109
  Transmission Date: 20080703
  Serious: No
  Sender: FDA-Public Use
  Company Number: 163-21880-07110601

PATIENT
  Age: 67 Year
  Sex: Male

DRUGS (6)
  1. REVLIMID [Suspect]
     Indication: MULTIPLE MYELOMA
     Dosage: 24 MG, DAILY FOR 21 DAYS, ORAL ; 15-25MG, DAILY, ORAL
     Route: 048
     Dates: start: 20070124, end: 20070601
  2. REVLIMID [Suspect]
     Indication: MULTIPLE MYELOMA
     Dosage: 24 MG, DAILY FOR 21 DAYS, ORAL ; 15-25MG, DAILY, ORAL
     Route: 048
     Dates: start: 20070620
  3. DEXAMETHASONE TAB [Concomitant]
  4. ARANESP [Concomitant]
  5. MORPHINE [Concomitant]
  6. BACTRIM [Concomitant]

REACTIONS (2)
  - AMNESIA [None]
  - DIZZINESS [None]
